APPROVED DRUG PRODUCT: MONTELUKAST SODIUM
Active Ingredient: MONTELUKAST SODIUM
Strength: EQ 5MG BASE
Dosage Form/Route: TABLET, CHEWABLE;ORAL
Application: A201581 | Product #002 | TE Code: AB
Applicant: SENORES PHARMACEUTICALS INC
Approved: Aug 6, 2012 | RLD: No | RS: No | Type: RX